FAERS Safety Report 5343588-9 (Version None)
Quarter: 2007Q2

REPORT INFORMATION
  Report Type: 
  Country: None (occurrence: None)
  Receive Date: 20070604
  Receipt Date: 20070525
  Transmission Date: 20071010
  Serious: Yes (Hospitalization, Other)
  Sender: FDA-Public Use
  Company Number: US-ELI_LILLY_AND_COMPANY-US200705007113

PATIENT
  Age: 49 Year
  Sex: Female

DRUGS (2)
  1. ZYPREXA [Suspect]
     Dosage: 60 MG, DAILY (1/D)
     Route: 048
     Dates: start: 20040427, end: 20040427
  2. FLUOXETINE [Concomitant]
     Dosage: 60 MG, UNKNOWN
     Route: 048

REACTIONS (6)
  - BLOOD PRESSURE ABNORMAL [None]
  - BRAIN DAMAGE [None]
  - DIZZINESS [None]
  - DRUG DISPENSING ERROR [None]
  - MEDICATION ERROR [None]
  - THINKING ABNORMAL [None]
